FAERS Safety Report 4618223-5 (Version None)
Quarter: 2005Q1

REPORT INFORMATION
  Report Type: 
  Country: None (occurrence: None)
  Receive Date: 20050323
  Receipt Date: 20050311
  Transmission Date: 20050727
  Serious: Yes (Hospitalization)
  Sender: FDA-Public Use
  Company Number: JP_031202414

PATIENT
  Age: 35 Year
  Sex: Male
  Weight: 61 kg

DRUGS (2)
  1. HUMALOG [Suspect]
     Indication: DIABETES MELLITUS INSULIN-DEPENDENT
     Dosage: 26 U DAY
     Dates: start: 20021023
  2. HUMULIN N [Concomitant]

REACTIONS (4)
  - GENERAL PHYSICAL HEALTH DETERIORATION [None]
  - IMPAIRED SELF-CARE [None]
  - KETOACIDOSIS [None]
  - TREATMENT NONCOMPLIANCE [None]
